FAERS Safety Report 7114312-4 (Version None)
Quarter: 2010Q4

REPORT INFORMATION
  Report Type: 
  Country: None (occurrence: None)
  Receive Date: 20101119
  Receipt Date: 20101112
  Transmission Date: 20110411
  Serious: Yes (Death)
  Sender: FDA-Public Use
  Company Number: MX-PFIZER INC-2010149266

PATIENT
  Age: 92 Year
  Sex: Female

DRUGS (2)
  1. CELEBREX [Suspect]
     Route: 048
  2. LYRICA [Suspect]
     Route: 048

REACTIONS (1)
  - DEATH [None]
